FAERS Safety Report 5845025-4 (Version None)
Quarter: 2008Q3

REPORT INFORMATION
  Report Type: 
  Country: None (occurrence: None)
  Receive Date: 20080814
  Receipt Date: 20080806
  Transmission Date: 20090109
  Serious: Yes (Life-Threatening)
  Sender: FDA-Public Use
  Company Number: JP-BRISTOL-MYERS SQUIBB COMPANY-14239099

PATIENT
  Age: 34 Year
  Sex: Female
  Weight: 47 kg

DRUGS (13)
  1. ABILIFY [Suspect]
     Indication: SCHIZOPHRENIA
     Dosage: 6MG FROM 24-APR-2008 TO 11-JUN-2008; INCREASED TO 18MG FROM 12-JUN-2008 TO 17-JUN-2008.
     Route: 048
     Dates: start: 20080424, end: 20080617
  2. FAMOTIDINE [Suspect]
     Indication: GASTRITIS
     Route: 048
     Dates: end: 20080616
  3. RISPERDAL [Concomitant]
     Indication: SCHIZOPHRENIA
     Dosage: 12MG ON 24-APR-2008,TAB ER
  4. CONTOMIN [Concomitant]
     Dosage: TABS
     Dates: start: 20080609
  5. AKINETON [Concomitant]
     Dosage: TABS
  6. VEGETAMIN A [Concomitant]
     Dosage: TABS
  7. SILECE [Concomitant]
     Dosage: TABS
  8. PURSENNID [Concomitant]
     Dosage: TABS
  9. YODEL-S [Concomitant]
     Dosage: TABS
  10. RISUMIC [Concomitant]
     Dosage: TABS
  11. MAGMITT [Concomitant]
     Dosage: TABS
  12. LORAZEPAM [Concomitant]
     Dosage: TABS
  13. UBRETID [Concomitant]
     Dosage: TABS

REACTIONS (2)
  - GRANULOCYTE COUNT DECREASED [None]
  - NEUTROPENIA [None]
